FAERS Safety Report 18113971 (Version 2)
Quarter: 2020Q3

REPORT INFORMATION
  Report Type: Spontaneous
  Country: US (occurrence: US)
  Receive Date: 20200805
  Receipt Date: 20200806
  Transmission Date: 20201103
  Serious: Yes (Life-Threatening, Hospitalization)
  Sender: FDA-Public Use
  Company Number: US-PFIZER INC-2020285543

PATIENT
  Age: 21 Year
  Sex: Female

DRUGS (3)
  1. MOTRIN [Suspect]
     Active Substance: IBUPROFEN
     Indication: ARTHRALGIA
     Dosage: 1.6 G, DAILY (ABOUT FOUR MONTHS)
  2. PREDNISONE. [Concomitant]
     Active Substance: PREDNISONE
     Dosage: UNK (SMALL DOSES)
  3. PREDNISONE. [Concomitant]
     Active Substance: PREDNISONE
     Dosage: 60 MG, DAILY

REACTIONS (1)
  - Septic shock [Recovered/Resolved]
